FAERS Safety Report 15255649 (Version 4)
Quarter: 2018Q4

REPORT INFORMATION
  Report Type: Spontaneous
  Country: US (occurrence: US)
  Receive Date: 20180808
  Receipt Date: 20181018
  Transmission Date: 20190204
  Serious: No
  Sender: FDA-Public Use
  Company Number: US-PFIZER INC-2018317568

PATIENT
  Age: 63 Year
  Sex: Male
  Weight: 83.91 kg

DRUGS (1)
  1. CHANTIX [Suspect]
     Active Substance: VARENICLINE TARTRATE
     Indication: SMOKING CESSATION THERAPY
     Dosage: 0.5 MG, 1X/DAY
     Dates: start: 20180801

REACTIONS (5)
  - Gait disturbance [Recovered/Resolved]
  - Abnormal behaviour [Recovered/Resolved]
  - Feeling drunk [Recovered/Resolved]
  - Impaired driving ability [Recovered/Resolved]
  - Drug ineffective [Recovered/Resolved]

NARRATIVE: CASE EVENT DATE: 20180801
